FAERS Safety Report 24731343 (Version 1)
Quarter: 2024Q4

REPORT INFORMATION
  Report Type: Spontaneous
  Country: US (occurrence: None)
  Receive Date: 20241212
  Receipt Date: 20241212
  Transmission Date: 20250115
  Serious: Yes (Life-Threatening, Hospitalization, Other)
  Sender: Public
  Company Number: None

PATIENT
  Age: 69 Year
  Sex: Female
  Weight: 73.4 kg

DRUGS (2)
  1. IMFINZI [Suspect]
     Active Substance: DURVALUMAB
     Indication: Hepatic cancer
     Route: 042
     Dates: end: 20241021
  2. IMFINZI [Concomitant]
     Active Substance: DURVALUMAB
     Dates: start: 20240422, end: 20241121

REACTIONS (3)
  - Cardiomyopathy [None]
  - Shock [None]
  - Organ failure [None]

NARRATIVE: CASE EVENT DATE: 20241210
